FAERS Safety Report 23369152 (Version 1)
Quarter: 2024Q1

REPORT INFORMATION
  Report Type: Spontaneous
  Country: ES (occurrence: ES)
  Receive Date: 20240105
  Receipt Date: 20240105
  Transmission Date: 20240410
  Serious: Yes (Other)
  Sender: FDA-Public Use
  Company Number: None

PATIENT
  Sex: Male
  Weight: 76 kg

DRUGS (2)
  1. RINVOQ [Suspect]
     Active Substance: UPADACITINIB
     Indication: Dermatitis
     Dosage: 1 PILL A DAY IN THE MORNING
     Route: 048
     Dates: start: 20200730
  2. DUPIXENT [Suspect]
     Active Substance: DUPILUMAB
     Indication: Dermatitis
     Dosage: DUPIXENT 300 MG SOLUTION FOR INJECTION IN PRE-FILLED SYRINGE, 2 PRE-FILLED SYRINGES OF 2 ML
     Route: 058
     Dates: start: 20200730

REACTIONS (2)
  - Pain [Not Recovered/Not Resolved]
  - Muscle spasms [Not Recovered/Not Resolved]

NARRATIVE: CASE EVENT DATE: 20210115
